FAERS Safety Report 5987208-9 (Version None)
Quarter: 2008Q4

REPORT INFORMATION
  Report Type: 
  Country: None (occurrence: None)
  Receive Date: 20081209
  Receipt Date: 20081129
  Transmission Date: 20090506
  Serious: Yes (Hospitalization, Other)
  Sender: FDA-Public Use
  Company Number: PL-PFIZER INC-2008101520

PATIENT

DRUGS (3)
  1. MARAVIROC [Suspect]
     Indication: HIV INFECTION
     Dosage: 300 MG, 2X/DAY
     Dates: start: 20051220
  2. EPIVIR [Concomitant]
     Indication: HIV INFECTION
     Dosage: 150 MG, UNK
     Route: 048
     Dates: start: 20051220
  3. VIREAD [Concomitant]
     Indication: HIV INFECTION
     Dosage: 300 MG, UNK
     Dates: start: 20051220

REACTIONS (1)
  - NEOPLASM [None]
